FAERS Safety Report 16305415 (Version 3)
Quarter: 2022Q3

REPORT INFORMATION
  Report Type: Spontaneous
  Country: US (occurrence: None)
  Receive Date: 20190513
  Receipt Date: 20220823
  Transmission Date: 20221026
  Serious: Yes (Other)
  Sender: FDA-Public Use
  Company Number: 2019SE63882

PATIENT
  Age: 29 Year
  Sex: Male

DRUGS (32)
  1. NEXIUM [Suspect]
     Active Substance: ESOMEPRAZOLE MAGNESIUM
     Indication: Gastrooesophageal reflux disease
     Route: 048
     Dates: start: 2010, end: 2014
  2. OMEPRAZOLE [Suspect]
     Active Substance: OMEPRAZOLE
     Indication: Gastrooesophageal reflux disease
     Dosage: GENERIC
     Route: 065
     Dates: start: 2014, end: 2018
  3. PRILOSEC OTC [Suspect]
     Active Substance: OMEPRAZOLE MAGNESIUM
     Indication: Gastrooesophageal reflux disease
     Route: 048
     Dates: start: 2010, end: 2018
  4. PREVACID [Suspect]
     Active Substance: LANSOPRAZOLE
     Indication: Gastrooesophageal reflux disease
     Route: 065
     Dates: start: 2010, end: 2014
  5. PROTONIX [Suspect]
     Active Substance: PANTOPRAZOLE SODIUM
     Indication: Gastrooesophageal reflux disease
     Route: 065
     Dates: start: 2010, end: 2014
  6. PRAVASTATIN [Concomitant]
     Active Substance: PRAVASTATIN
     Indication: Blood cholesterol abnormal
     Dates: start: 2015, end: 2019
  7. FUROSEMIDE [Concomitant]
     Active Substance: FUROSEMIDE
     Indication: Oedema
     Dates: start: 2017, end: 2019
  8. TUMS [Concomitant]
     Active Substance: CALCIUM CARBONATE
  9. ACETAMINOPHEN\HYDROCODONE [Concomitant]
     Active Substance: ACETAMINOPHEN\HYDROCODONE
  10. PROMETHAZINE [Concomitant]
     Active Substance: PROMETHAZINE HYDROCHLORIDE
  11. RANITIDINE [Concomitant]
     Active Substance: RANITIDINE
  12. FAMOTIDINE [Concomitant]
     Active Substance: FAMOTIDINE
  13. CLINDAMYCIN [Concomitant]
     Active Substance: CLINDAMYCIN
  14. METHYLPREDNISOLONE [Concomitant]
     Active Substance: METHYLPREDNISOLONE
  15. MEPERIDINE [Concomitant]
     Active Substance: MEPERIDINE
  16. METOCLOPRAMIDE [Concomitant]
     Active Substance: METOCLOPRAMIDE
     Dates: start: 20181016
  17. ONDANSETRON [Concomitant]
     Active Substance: ONDANSETRON
  18. SUCRALFATE [Concomitant]
     Active Substance: SUCRALFATE
  19. CLONIDINE [Concomitant]
     Active Substance: CLONIDINE
  20. NIFEDIPINE [Concomitant]
     Active Substance: NIFEDIPINE
  21. LANTUS [Concomitant]
     Active Substance: INSULIN GLARGINE
  22. HUMALOG [Concomitant]
     Active Substance: INSULIN LISPRO
  23. BENICAR [Concomitant]
     Active Substance: OLMESARTAN MEDOXOMIL
  24. VIAGRA [Concomitant]
     Active Substance: SILDENAFIL CITRATE
  25. NOVOLOG [Concomitant]
     Active Substance: INSULIN ASPART
  26. LOSARTAN [Concomitant]
     Active Substance: LOSARTAN
  27. CARVEDILOL [Concomitant]
     Active Substance: CARVEDILOL
  28. LEVEMIR [Concomitant]
     Active Substance: INSULIN DETEMIR
  29. MINOXIDIL [Concomitant]
     Active Substance: MINOXIDIL
  30. AMLODIPINE BESYLATE [Concomitant]
     Active Substance: AMLODIPINE BESYLATE
     Dates: start: 20180511
  31. HYDRALAZINE [Concomitant]
     Active Substance: HYDRALAZINE HYDROCHLORIDE
     Dates: start: 20180503
  32. ATORVASTATIN [Concomitant]
     Active Substance: ATORVASTATIN
     Dates: start: 20180503

REACTIONS (1)
  - Chronic kidney disease [Unknown]

NARRATIVE: CASE EVENT DATE: 20170101
